FAERS Safety Report 19223675 (Version 3)
Quarter: 2021Q2

REPORT INFORMATION
  Report Type: Spontaneous
  Country: US (occurrence: US)
  Receive Date: 20210506
  Receipt Date: 20210610
  Transmission Date: 20210717
  Serious: No
  Sender: FDA-Public Use
  Company Number: US-JNJFOC-20210449951

PATIENT
  Age: 71 Year
  Sex: Female
  Weight: 77.18 kg

DRUGS (1)
  1. WOMENS ROGAINE UNSCENTED [Suspect]
     Active Substance: MINOXIDIL
     Indication: ALOPECIA
     Dosage: HALF A CUP FULL ONCE A DAY?PRODUCT STOP DATE: 22 APRIL 2021
     Route: 061
     Dates: start: 20210102

REACTIONS (1)
  - Drug ineffective [Unknown]
